FAERS Safety Report 7973884-8 (Version None)
Quarter: 2011Q4

REPORT INFORMATION
  Report Type: 
  Country: None (occurrence: None)
  Receive Date: 20111213
  Receipt Date: 20111206
  Transmission Date: 20120403
  Serious: Yes (Hospitalization)
  Sender: FDA-Public Use
  Company Number: US-BRISTOL-MYERS SQUIBB COMPANY-16162554

PATIENT
  Age: 51 Year
  Sex: Male
  Weight: 68 kg

DRUGS (15)
  1. ERBITUX [Suspect]
     Indication: HEAD AND NECK CANCER
     Dosage: FROM 12AUG11, 400MG/M2 LOADING DOSE 19AUG-26AUG11, 19-25OCT11.,250MG/M2 WKS 2,3 1-23NOV11,30NOV11
     Route: 042
     Dates: start: 20110812
  2. LISINOPRIL [Concomitant]
  3. AMARYL [Concomitant]
     Route: 048
  4. COMPAZINE [Concomitant]
     Route: 048
  5. NOVOLOG [Concomitant]
     Dosage: 1DF=2 UNITS BEFORE MEALS.
     Route: 058
  6. ATIVAN [Concomitant]
     Dosage: ALSO 3PER DAY
     Route: 048
  7. ISOSORBIDE DINITRATE [Concomitant]
     Dosage: 1DF=60ML/HR FOR 16HRS/DAY
  8. CISPLATIN [Suspect]
     Indication: HEAD AND NECK CANCER
     Dosage: ALSO ON 25OCT11 19OCT-25OCT2011
     Route: 042
     Dates: start: 20111019
  9. FLOMAX [Concomitant]
     Dosage: 0.4MG PEG TUBE DAILY.
  10. OXYCODONE HCL [Concomitant]
     Dosage: EVERY 4HRS
     Route: 048
  11. DOXYCYCLINE [Concomitant]
     Route: 048
  12. METFORMIN HCL [Concomitant]
     Route: 048
  13. FLUCONAZOLE [Concomitant]
     Dosage: PEG TUBE
  14. CARBOPLATIN [Suspect]
     Indication: HEAD AND NECK CANCER
     Dosage: 1DF= 2AUC,01NOV11-23NOV11,30NOV11
     Dates: start: 20111101
  15. DECADRON [Concomitant]
     Route: 048

REACTIONS (17)
  - HYPOGLYCAEMIA [None]
  - HEARING IMPAIRED [None]
  - NAUSEA [None]
  - HEADACHE [None]
  - PLATELET COUNT DECREASED [None]
  - DEHYDRATION [None]
  - PRESYNCOPE [None]
  - DECREASED APPETITE [None]
  - DIZZINESS [None]
  - DYSPNOEA [None]
  - CONSTIPATION [None]
  - WEIGHT DECREASED [None]
  - HYPOXIA [None]
  - VOMITING [None]
  - FALL [None]
  - RENAL FAILURE ACUTE [None]
  - HYPOTENSION [None]
